FAERS Safety Report 16305821 (Version 1)
Quarter: 2019Q2

REPORT INFORMATION
  Report Type: Spontaneous
  Country: US (occurrence: US)
  Receive Date: 20190512
  Receipt Date: 20190512
  Transmission Date: 20190711
  Serious: Yes (Other)
  Sender: FDA-Public Use
  Company Number: None

PATIENT
  Age: 42 Year
  Sex: Male
  Weight: 83.25 kg

DRUGS (1)
  1. GABAPENTIN. [Suspect]
     Active Substance: GABAPENTIN
     Indication: NEURALGIA
     Dosage: ?          QUANTITY:2 TABLET(S);?
     Route: 048
     Dates: start: 20190509, end: 20190510

REACTIONS (5)
  - Neck pain [None]
  - Lymphadenopathy [None]
  - Lymphatic disorder [None]
  - Lymph node pain [None]
  - Erythema [None]

NARRATIVE: CASE EVENT DATE: 20190510
